FAERS Safety Report 12074761 (Version 2)
Quarter: 2016Q1

REPORT INFORMATION
  Report Type: Spontaneous
  Country: IT (occurrence: IT)
  Receive Date: 20160212
  Receipt Date: 20160216
  Transmission Date: 20160526
  Serious: Yes (Death, Hospitalization)
  Sender: FDA-Public Use
  Company Number: IT-B.I. PHARMACEUTICALS,INC./RIDGEFIELD-2016-BI-07764IT

PATIENT
  Age: 89 Year
  Sex: Male

DRUGS (5)
  1. SEQUACOR [Concomitant]
     Active Substance: BISOPROLOL
     Indication: ATRIAL FIBRILLATION
     Dosage: 1 ANZ
     Route: 048
  2. PRADAXA [Suspect]
     Active Substance: DABIGATRAN ETEXILATE MESYLATE
     Indication: ATRIAL FIBRILLATION
     Dosage: 220 MG
     Route: 048
     Dates: start: 20130731, end: 20151116
  3. FLUXUM [Suspect]
     Active Substance: PARNAPARIN SODIUM
     Indication: THROMBOSIS PROPHYLAXIS
     Dosage: 0.3 ML
     Route: 058
     Dates: start: 20151028, end: 20151116
  4. GLICONORM [Concomitant]
     Active Substance: GLYBURIDE\METFORMIN
     Indication: DIABETES MELLITUS
     Dosage: 2 ANZ
     Route: 048
  5. HALDOL [Concomitant]
     Active Substance: HALOPERIDOL
     Indication: VASCULAR DEMENTIA
     Dosage: 10 ANZ
     Route: 048

REACTIONS (4)
  - Cholecystitis acute [Fatal]
  - Rectal haemorrhage [Fatal]
  - Anaemia [Fatal]
  - Duodenal ulcer [Fatal]

NARRATIVE: CASE EVENT DATE: 20151117
